FAERS Safety Report 16324950 (Version 1)
Quarter: 2019Q2

REPORT INFORMATION
  Report Type: Spontaneous
  Country: DK (occurrence: DK)
  Receive Date: 20190517
  Receipt Date: 20190517
  Transmission Date: 20190711
  Serious: Yes (Disabling)
  Sender: FDA-Public Use
  Company Number: DK-TEVA-2019-DK-1050055

PATIENT
  Age: 35 Year
  Sex: Female
  Weight: 97 kg

DRUGS (7)
  1. VALDOXAN [Concomitant]
     Active Substance: AGOMELATINE
     Indication: DEPRESSION
     Dosage: STYRKE: 25 MG.
     Route: 048
     Dates: start: 20161013
  2. OXYCODONE [Concomitant]
     Active Substance: OXYCODONE
     Indication: PAIN
     Dosage: STYRKE: 10 MG.
     Route: 048
     Dates: start: 20170516
  3. DENISE [Concomitant]
     Active Substance: DESOGESTREL\ETHINYL ESTRADIOL
     Indication: CONTRACEPTION
     Dosage: STYRKE: 150 + 20 MIKROGRAM.
     Route: 048
     Dates: start: 20141007
  4. CIPROFLOXACIN ^ACTAVIS^ [Suspect]
     Active Substance: CIPROFLOXACIN
     Indication: CYSTITIS
     Dosage: STYRKE: 500 MG.
     Route: 048
     Dates: start: 20180226
  5. LYRICA [Concomitant]
     Active Substance: PREGABALIN
     Indication: NEURALGIA
     Dosage: STYRKE: 75 MG.
     Route: 048
     Dates: start: 20170421
  6. PAMOL [Concomitant]
     Active Substance: ACETAMINOPHEN
     Indication: PAIN
     Dosage: STYRKE: 500 MG.
     Route: 048
     Dates: start: 20131118
  7. OXYNORM [Concomitant]
     Active Substance: OXYCODONE HYDROCHLORIDE
     Indication: PAIN
     Dosage: STYRKE: 5 MG.
     Route: 048
     Dates: start: 20170606

REACTIONS (5)
  - Tendonitis [Not Recovered/Not Resolved]
  - Pain in extremity [Not Recovered/Not Resolved]
  - Gait disturbance [Not Recovered/Not Resolved]
  - Plantar fasciitis [Not Recovered/Not Resolved]
  - Tendon pain [Not Recovered/Not Resolved]

NARRATIVE: CASE EVENT DATE: 20180611
